FAERS Safety Report 13511862 (Version 3)
Quarter: 2017Q3

REPORT INFORMATION
  Report Type: Report from Study
  Country: US (occurrence: US)
  Receive Date: 20170504
  Receipt Date: 20170705
  Transmission Date: 20171127
  Serious: Yes (Other)
  Sender: FDA-Public Use
  Company Number: US-PFIZER INC-2017020712

PATIENT
  Age: 59 Year
  Sex: Female

DRUGS (1)
  1. IBRANCE [Suspect]
     Active Substance: PALBOCICLIB
     Indication: BREAST CANCER
     Dosage: 125 MG, CYCLIC (DAILY: 3 WEEKS ON/1 WEEK OFF)
     Route: 048
     Dates: start: 20170116, end: 20170626

REACTIONS (7)
  - Bone marrow failure [Not Recovered/Not Resolved]
  - White blood cell count decreased [Unknown]
  - Alopecia [Unknown]
  - Neoplasm progression [Unknown]
  - Dry skin [Not Recovered/Not Resolved]
  - Gingival pain [Recovering/Resolving]
  - Skin discolouration [Not Recovered/Not Resolved]
